FAERS Safety Report 22093581 (Version 1)
Quarter: 2023Q1

REPORT INFORMATION
  Report Type: Spontaneous
  Country: US (occurrence: None)
  Receive Date: 20230313
  Receipt Date: 20230313
  Transmission Date: 20230417
  Serious: Yes (Other)
  Sender: FDA-Public Use
  Company Number: None

PATIENT
  Age: 30 Year
  Sex: Female

DRUGS (1)
  1. PHEXXI [Suspect]
     Active Substance: CITRIC ACID MONOHYDRATE\LACTIC ACID, L-\POTASSIUM BITARTRATE
     Indication: Contraception
     Dosage: OTHER QUANTITY : 1 VAGINAL APPLICATOR;?FREQUENCY : AS NEEDED;?
     Route: 067
     Dates: start: 20211005, end: 20220606

REACTIONS (1)
  - Pregnancy on contraceptive [None]

NARRATIVE: CASE EVENT DATE: 20220423
